FAERS Safety Report 8599103-X (Version None)
Quarter: 2012Q3

REPORT INFORMATION
  Report Type: 
  Country: None (occurrence: None)
  Receive Date: 20120816
  Receipt Date: 19960729
  Transmission Date: 20120928
  Serious: Yes (Hospitalization)
  Sender: FDA-Public Use
  Company Number: US-ROCHE-1101304

PATIENT
  Sex: Female

DRUGS (6)
  1. ACTIVASE [Suspect]
     Indication: ACUTE MYOCARDIAL INFARCTION
  2. ACTIVASE [Suspect]
     Indication: CHEST PAIN
  3. ISORDIL [Concomitant]
  4. NITROGLYCERIN SUBLINGUAL [Concomitant]
     Route: 060
  5. ASPIRIN [Concomitant]
  6. CARDIZEM [Concomitant]

REACTIONS (1)
  - CHEST PAIN [None]
